FAERS Safety Report 11702865 (Version 1)
Quarter: 2015Q4

REPORT INFORMATION
  Report Type: Spontaneous
  Country: US (occurrence: US)
  Receive Date: 20151105
  Receipt Date: 20151105
  Transmission Date: 20160304
  Serious: No
  Sender: FDA-Public Use
  Company Number: US-ENDO PHARMACEUTICALS INC.-2015-001719

PATIENT
  Sex: Female

DRUGS (2)
  1. ACETAMINOPHEN #3 [Suspect]
     Active Substance: ACETAMINOPHEN\CODEINE PHOSPHATE
     Indication: ARTHRALGIA
     Dosage: 300/30 MG-1 TABLET AS NEEDED
     Route: 048
     Dates: start: 201506
  2. ACETAMINOPHEN #3 [Suspect]
     Active Substance: ACETAMINOPHEN\CODEINE PHOSPHATE
     Dosage: 300/30 MG-1/2 TABLET AS NEEDED
     Route: 048
     Dates: start: 201502, end: 201506

REACTIONS (2)
  - Drug effect decreased [Not Recovered/Not Resolved]
  - Somnolence [Not Recovered/Not Resolved]

NARRATIVE: CASE EVENT DATE: 201506
